FAERS Safety Report 17925365 (Version 1)
Quarter: 2020Q2

REPORT INFORMATION
  Report Type: Report from Study
  Country: None (occurrence: US)
  Receive Date: 20200622
  Receipt Date: 20200622
  Transmission Date: 20200714
  Serious: Yes (Other)
  Sender: FDA-Public Use
  Company Number: US-ABBVIE-20P-163-3453149-00

PATIENT
  Sex: Female

DRUGS (1)
  1. IMBRUVICA [Suspect]
     Active Substance: IBRUTINIB
     Indication: NON-HODGKIN^S LYMPHOMA
     Route: 048
     Dates: start: 20180626

REACTIONS (6)
  - Fall [Unknown]
  - Eye haemorrhage [Unknown]
  - Balance disorder [Unknown]
  - Seasonal affective disorder [Unknown]
  - Hand fracture [Unknown]
  - Brain neoplasm [Unknown]
